FAERS Safety Report 7068459 (Version 2)
Quarter: 2014Q1

REPORT INFORMATION
  Report Type: Spontaneous
  Country: US (occurrence: None)
  Receive Date: 20090724
  Receipt Date: 20140205
  Transmission Date: 20141002
  Serious: Yes (Other)
  Sender: FDA-Public Use
  Company Number: 2009S1005704

PATIENT
  Sex: 0
  Weight: 99.34 kg

DRUGS (4)
  1. FLEET PHOSPHOSODA [Suspect]
     Route: 048
     Dates: start: 200805, end: 200805
  2. LISINOPRIL(LISINOPRIL) [Concomitant]
  3. EFFEXOR(VENLAFAXINE HYDROCHLORIDE) [Concomitant]
  4. VITAMIN E (TOCOPHEROL) [Concomitant]

REACTIONS (3)
  - Renal failure [None]
  - Mesangioproliferative glomerulonephritis [None]
  - Renal arteriosclerosis [None]
